FAERS Safety Report 10427296 (Version 1)
Quarter: 2014Q3

REPORT INFORMATION
  Report Type: Spontaneous
  Country: US (occurrence: US)
  Receive Date: 20140903
  Receipt Date: 20140903
  Transmission Date: 20150326
  Serious: Yes (Hospitalization)
  Sender: FDA-Public Use
  Company Number: US-ASTRAZENECA-2014SE63873

PATIENT
  Age: 15 Year
  Sex: Female

DRUGS (1)
  1. SEROQUEL [Suspect]
     Active Substance: QUETIAPINE FUMARATE
     Route: 048
     Dates: start: 201408

REACTIONS (2)
  - Electrocardiogram QT prolonged [Unknown]
  - Overdose [Unknown]

NARRATIVE: CASE EVENT DATE: 201408
